FAERS Safety Report 4598141-1 (Version None)
Quarter: 2005Q1

REPORT INFORMATION
  Report Type: 
  Country: None (occurrence: None)
  Receive Date: 20050301
  Receipt Date: 20050301
  Transmission Date: 20050727
  Serious: Yes (Death)
  Sender: FDA-Public Use
  Company Number: None

PATIENT
  Age: 49 Year
  Sex: Male
  Weight: 87.7 kg

DRUGS (15)
  1. ETODOLAC [Suspect]
     Indication: BACK PAIN
     Dates: start: 20021025, end: 20041217
  2. ASPIRIN [Suspect]
     Indication: CARDIAC DISORDER
     Dates: start: 20020926, end: 20041217
  3. VENLAFAXINE HCL [Concomitant]
  4. CYPROHEPTADINE HCL [Concomitant]
  5. FUROSEMIDE [Concomitant]
  6. RANITIDINE [Concomitant]
  7. TERAZOSIN [Concomitant]
  8. SIMVASTATIN [Concomitant]
  9. BISACODYL [Concomitant]
  10. CLONAZEPAM [Concomitant]
  11. HALOPERIDOL [Concomitant]
  12. OXYCODONE AND ACETAMINOPHEN [Concomitant]
  13. TESTOSTERONE ENAN [Concomitant]
  14. PENICILLIN VK [Concomitant]
  15. CLOZAPINE [Concomitant]

REACTIONS (18)
  - ALCOHOL USE [None]
  - ASTHENIA [None]
  - CARDIO-RESPIRATORY ARREST [None]
  - COMA [None]
  - CONSTIPATION [None]
  - DIARRHOEA [None]
  - ELECTROMECHANICAL DISSOCIATION [None]
  - FLUID OVERLOAD [None]
  - GASTRIC ULCER [None]
  - GASTROINTESTINAL HAEMORRHAGE [None]
  - HAEMOPTYSIS [None]
  - HEADACHE [None]
  - HYPOTENSION [None]
  - LEUKOCYTOSIS [None]
  - LOSS OF CONSCIOUSNESS [None]
  - PNEUMONIA [None]
  - PULSE ABSENT [None]
  - TACHYCARDIA [None]
